FAERS Safety Report 21208471 (Version 1)
Quarter: 2022Q3

REPORT INFORMATION
  Report Type: Spontaneous
  Country: US (occurrence: None)
  Receive Date: 20220811
  Receipt Date: 20220811
  Transmission Date: 20221027
  Serious: No
  Sender: FDA-Public Use
  Company Number: None

PATIENT
  Age: 22 Year
  Sex: Male

DRUGS (1)
  1. ENTECAVIR [Suspect]
     Active Substance: ENTECAVIR
     Dosage: FREQUENCY : DAILY;?
     Route: 048
     Dates: start: 20220624

REACTIONS (5)
  - Decreased appetite [None]
  - Fatigue [None]
  - Dyspnoea [None]
  - Heart rate increased [None]
  - Epistaxis [None]

NARRATIVE: CASE EVENT DATE: 20220716
